FAERS Safety Report 16762538 (Version 3)
Quarter: 2020Q1

REPORT INFORMATION
  Report Type: Spontaneous
  Country: FR (occurrence: FR)
  Receive Date: 20190831
  Receipt Date: 20200306
  Transmission Date: 20200409
  Serious: Yes (Disabling, Other)
  Sender: FDA-Public Use
  Company Number: FR-CELLTRION INC.-2019FR022303

PATIENT

DRUGS (8)
  1. TRUXIMA [Suspect]
     Active Substance: RITUXIMAB-ABBS
     Dosage: 1 PERFUSION FOR 2 HOURS (INSTEAD OF 4 HOURS)
     Route: 042
     Dates: start: 20200211, end: 20200211
  2. DECONTRACTYL [MEPHENESIN] [Concomitant]
     Active Substance: MEPHENESIN
     Dosage: UNK
  3. TRUXIMA [Suspect]
     Active Substance: RITUXIMAB-ABBS
     Dosage: 500 MG, AT 15-DAY INTERVAL
     Dates: start: 20190314, end: 20190314
  4. CORTANCYL [Concomitant]
     Active Substance: PREDNISONE
     Indication: PEMPHIGUS
     Dosage: UNK
  5. TRUXIMA [Suspect]
     Active Substance: RITUXIMAB-ABBS
     Indication: PEMPHIGUS
     Dosage: 500 MG, AT 15-DAY INTERVAL
     Dates: start: 201902, end: 201902
  6. CORTISONE [Concomitant]
     Active Substance: CORTISONE
     Dosage: UNK
  7. DOLIPRANE [Concomitant]
     Active Substance: ACETAMINOPHEN
     Dosage: UNK
  8. TANGANIL [Concomitant]
     Active Substance: ACETYLLEUCINE
     Indication: PRODUCT USED FOR UNKNOWN INDICATION
     Route: 048

REACTIONS (14)
  - Nasal congestion [Recovered/Resolved]
  - Oropharyngeal pain [Recovering/Resolving]
  - Arthralgia [Recovered/Resolved]
  - Speech disorder [Recovering/Resolving]
  - Monoplegia [Recovered/Resolved]
  - Myalgia [Recovered/Resolved]
  - Product use issue [Unknown]
  - Eructation [Recovered/Resolved]
  - Fatigue [Recovered/Resolved]
  - Feeding disorder [Recovered/Resolved]
  - Dizziness [Recovered/Resolved]
  - Abdominal pain upper [Recovered/Resolved]
  - Muscle spasms [Recovered/Resolved]
  - Underdose [Unknown]

NARRATIVE: CASE EVENT DATE: 20190315
